FAERS Safety Report 6596105-X (Version None)
Quarter: 2010Q1

REPORT INFORMATION
  Report Type: 
  Country: None (occurrence: None)
  Receive Date: 20100223
  Receipt Date: 20100209
  Transmission Date: 20100710
  Serious: Yes (Hospitalization)
  Sender: FDA-Public Use
  Company Number: AT-CELGENEUS-009-50794-10020387

PATIENT
  Age: 66 Year
  Sex: Female
  Weight: 60 kg

DRUGS (6)
  1. VIDAZA [Suspect]
     Route: 050
     Dates: start: 20100118, end: 20100125
  2. VIDAZA [Suspect]
     Route: 050
     Dates: start: 20090911
  3. LANSOBENE [Concomitant]
     Dosage: 30
     Route: 065
  4. UROSIN [Concomitant]
     Route: 065
  5. FUROSEMIDE [Concomitant]
     Route: 065
  6. URALYT-U GRANULATE [Concomitant]
     Indication: RENAL COLIC
     Route: 065

REACTIONS (1)
  - AXONAL NEUROPATHY [None]
